FAERS Safety Report 10017280 (Version 1)
Quarter: 2014Q1

REPORT INFORMATION
  Report Type: Spontaneous
  Country: US (occurrence: US)
  Receive Date: 20140318
  Receipt Date: 20140318
  Transmission Date: 20141002
  Serious: No
  Sender: FDA-Public Use
  Company Number: US-009507513-1403USA001701

PATIENT
  Age: 4 Year
  Sex: Male

DRUGS (1)
  1. DULERA [Suspect]
     Indication: ASTHMA
     Dosage: UNK
     Route: 055
     Dates: start: 201310

REACTIONS (5)
  - Chapped lips [Unknown]
  - Lip dry [Unknown]
  - Dry skin [Unknown]
  - Pruritus [Unknown]
  - Growth retardation [Unknown]
